FAERS Safety Report 16466427 (Version 1)
Quarter: 2019Q2

REPORT INFORMATION
  Report Type: Spontaneous
  Country: GB (occurrence: GB)
  Receive Date: 20190622
  Receipt Date: 20190622
  Transmission Date: 20190711
  Serious: Yes (Disabling)
  Sender: FDA-Public Use
  Company Number: GB-ACCORD-134489

PATIENT
  Age: 31 Year
  Sex: Male
  Weight: 127 kg

DRUGS (1)
  1. AMITRIPTYLINE [Suspect]
     Active Substance: AMITRIPTYLINE
     Indication: MIGRAINE
     Route: 048
     Dates: start: 20190319

REACTIONS (6)
  - Pain [Unknown]
  - Hypopnoea [Recovering/Resolving]
  - Oropharyngeal pain [Unknown]
  - Dyspnoea [Unknown]
  - Asthenia [Unknown]
  - Dysphagia [Unknown]

NARRATIVE: CASE EVENT DATE: 20190329
